FAERS Safety Report 7432913-0 (Version None)
Quarter: 2011Q2

REPORT INFORMATION
  Report Type: 
  Country: None (occurrence: None)
  Receive Date: 20110422
  Receipt Date: 20110419
  Transmission Date: 20111010
  Serious: No
  Sender: FDA-Public Use
  Company Number: US-PFIZER INC-2011049772

PATIENT
  Sex: Female

DRUGS (3)
  1. CENTRUM SILVER [Concomitant]
     Dosage: UNK
  2. ADVIL LIQUI-GELS [Suspect]
     Dosage: TOOK 2
  3. ADVIL PM [Suspect]
     Dosage: UNK
     Dates: start: 20100101

REACTIONS (2)
  - FATIGUE [None]
  - DRUG EFFECT DECREASED [None]
